FAERS Safety Report 7268275-1 (Version None)
Quarter: 2011Q1

REPORT INFORMATION
  Report Type: 
  Country: None (occurrence: None)
  Receive Date: 20110124
  Receipt Date: 20110111
  Transmission Date: 20110831
  Serious: Yes (Hospitalization, Other)
  Sender: FDA-Public Use
  Company Number: GB-ACCORD-004748

PATIENT
  Age: 57 Year
  Sex: Male

DRUGS (1)
  1. PACLITAXEL [Suspect]
     Indication: METASTATIC GASTRIC CANCER
     Dosage: INTRAVENOUS
     Route: 042

REACTIONS (5)
  - OFF LABEL USE [None]
  - EMPYEMA [None]
  - MEDIASTINAL ABSCESS [None]
  - DYSPHAGIA [None]
  - LUNG CANCER METASTATIC [None]
